FAERS Safety Report 8111787-9 (Version None)
Quarter: 2012Q1

REPORT INFORMATION
  Report Type: 
  Country: None (occurrence: None)
  Receive Date: 20120131
  Receipt Date: 20120120
  Transmission Date: 20120608
  Serious: Yes (Hospitalization, Other)
  Sender: FDA-Public Use
  Company Number: AUR-APL-2012-00329

PATIENT
  Age: 78 Year
  Sex: Male
  Weight: 84.5 kg

DRUGS (30)
  1. ALLOPURINOL [Concomitant]
  2. BACLOFEN [Concomitant]
  3. DOCUSATE (DOCUSTATE) [Concomitant]
  4. FINASTERIDE [Concomitant]
  5. CLONIDINE [Concomitant]
  6. COLCHICINE [Concomitant]
  7. ERGOCALCIFEROL [Concomitant]
  8. ACETAMINOPHEN W/ HYDROCODONE BITARTRATE (VICODIN) [Concomitant]
  9. NAPROXEN [Concomitant]
  10. OMEPRAZOLE [Concomitant]
  11. CIPROFLOXACIN [Suspect]
     Indication: URINARY TRACT INFECTION
  12. FERROUS SULFATE TAB [Concomitant]
  13. SIMVASTATIN [Concomitant]
  14. VITAMIN E [Concomitant]
  15. OXYCODONE HCL [Suspect]
     Indication: ANALGESIC THERAPY
  16. MORPHINE SULFATE INJ [Suspect]
     Indication: ANALGESIC THERAPY
     Dosage: INTRAVENOUS
     Route: 042
  17. FUROSEMIDE [Suspect]
     Indication: PRODUCT USED FOR UNKNOWN INDICATION
     Dosage: (20 MG), UNKNOWN
  18. ACETAMINOPHEN AND OXYCODONE HCL [Suspect]
     Indication: ANALGESIC THERAPY
     Dosage: UNKNOWN
  19. ACETAMINOPHEN [Concomitant]
  20. DESIPRAMINE HCL [Suspect]
     Indication: PRODUCT USED FOR UNKNOWN INDICATION
     Dosage: (50 MG), UNKNOWN
  21. VARDENAFIL (VARDENAFIL) [Concomitant]
  22. GABAPENTIN [Suspect]
     Indication: PRODUCT USED FOR UNKNOWN INDICATION
     Dosage: (100 MG), UNKNOWN
  23. DIPHENHYDRAMINE HCL [Suspect]
     Indication: PRODUCT USED FOR UNKNOWN INDICATION
  24. CAPSAICIN (CAPSAICIN) [Concomitant]
  25. CINACALCET HYDROCHLORIDE [Concomitant]
  26. RANITIDINE HYDROCHLORIDE [Concomitant]
  27. TERAZOSIN HCL [Concomitant]
  28. ACETYLSALICYLIC ACID (ACETYLSAICYLIC ACID) [Concomitant]
  29. LISINOPRIL [Concomitant]
  30. METFORMIN HCL [Suspect]
     Indication: PRODUCT USED FOR UNKNOWN INDICATION
     Dosage: (1000 MG), UNKNOWN

REACTIONS (4)
  - MENTAL STATUS CHANGES [None]
  - PAIN [None]
  - DELIRIUM [None]
  - AGITATION [None]
